FAERS Safety Report 9213879 (Version 3)
Quarter: 2013Q2

REPORT INFORMATION
  Report Type: Report from Study
  Country: BR (occurrence: BR)
  Receive Date: 20130405
  Receipt Date: 20130603
  Transmission Date: 20140414
  Serious: Yes (Hospitalization, Other)
  Sender: FDA-Public Use
  Company Number: BR-ABBOTT-12P-020-1005202-00

PATIENT
  Age: 55 Year
  Sex: Female
  Weight: 61 kg

DRUGS (19)
  1. HUMIRA [Suspect]
     Indication: RHEUMATOID ARTHRITIS
     Route: 058
     Dates: start: 201203, end: 20130124
  2. HUMIRA [Suspect]
     Route: 058
     Dates: start: 20130215
  3. VITAMINS [Suspect]
     Indication: PRODUCT USED FOR UNKNOWN INDICATION
  4. PURAN T4 [Concomitant]
     Indication: HYPOTHYROIDISM
     Dosage: IN FASTING
     Route: 048
     Dates: start: 2009
  5. PURAN T4 [Concomitant]
     Indication: THYROID DISORDER
  6. ABLOK PLUS [Concomitant]
     Indication: HYPERTENSION
     Dosage: 75 MG / 2.5 MG
  7. ABLOK PLUS [Concomitant]
     Dosage: 50/2.5
     Route: 048
     Dates: start: 2005
  8. LIBIAM [Concomitant]
     Indication: HORMONE REPLACEMENT THERAPY
     Route: 048
     Dates: start: 2008
  9. RIVOTRIL [Concomitant]
     Indication: SLEEP DISORDER THERAPY
     Dosage: AT NIGHT
     Route: 048
     Dates: start: 2003
  10. RIVOTRIL [Concomitant]
     Indication: DEPRESSION
  11. MENELAT [Concomitant]
     Indication: BIPOLAR DISORDER
  12. MENELAT [Concomitant]
     Indication: DEPRESSION
  13. DEFLAIMMUN [Concomitant]
     Indication: ANALGESIC THERAPY
  14. DEFLAIMMUN [Concomitant]
     Indication: ANTIINFLAMMATORY THERAPY
     Route: 048
     Dates: start: 2012
  15. QUETIAPINE [Concomitant]
     Indication: DEPRESSION
  16. QUETIAPINE [Concomitant]
     Dosage: AT NIGHT
     Route: 048
     Dates: start: 2008
  17. DEPAKOTE ER [Concomitant]
     Indication: DEPRESSION
     Dates: start: 2012
  18. DEPAKOTE ER [Concomitant]
     Indication: BIPOLAR DISORDER
  19. DEPAKOTE [Concomitant]
     Indication: DEPRESSION
     Route: 048
     Dates: start: 2008

REACTIONS (7)
  - Uterine leiomyoma [Recovered/Resolved]
  - Carotid artery disease [Unknown]
  - Vaginal haemorrhage [Unknown]
  - Weight increased [Unknown]
  - Painful respiration [Not Recovered/Not Resolved]
  - Hysterectomy [Recovered/Resolved]
  - Perineal operation [Recovered/Resolved]
